FAERS Safety Report 4982344-8 (Version None)
Quarter: 2006Q2

REPORT INFORMATION
  Report Type: 
  Country: None (occurrence: None)
  Receive Date: 20060419
  Receipt Date: 20060407
  Transmission Date: 20061013
  Serious: Yes (Hospitalization)
  Sender: FDA-Public Use
  Company Number: 2005US001202

PATIENT
  Age: 26 Year
  Sex: Female
  Weight: 70.9 kg

DRUGS (2)
  1. PROGRAF [Suspect]
     Indication: PROPHYLAXIS AGAINST TRANSPLANT REJECTION
     Dosage: 7.00 MG, UID, QD, ORAL
     Route: 048
     Dates: start: 20050225
  2. MYFORTIC [Concomitant]

REACTIONS (5)
  - CHEST PAIN [None]
  - KIDNEY TRANSPLANT REJECTION [None]
  - LEUKOCYTOSIS [None]
  - NAUSEA [None]
  - TACHYPNOEA [None]
